FAERS Safety Report 10311153 (Version 1)
Quarter: 2014Q3

REPORT INFORMATION
  Report Type: Spontaneous
  Country: US (occurrence: None)
  Receive Date: 20140716
  Receipt Date: 20140716
  Transmission Date: 20150326
  Serious: No
  Sender: FDA-Public Use
  Company Number: None

PATIENT
  Age: 35 Year
  Sex: Female
  Weight: 73.39 kg

DRUGS (1)
  1. LEVOTHYROXINE [Suspect]
     Active Substance: LEVOTHYROXINE
     Indication: HYPOTHYROIDISM
     Dosage: 88 MCG TO 175 MCG DAILY ORAL
     Route: 048
     Dates: start: 2005, end: 2010

REACTIONS (2)
  - Therapeutic response changed [None]
  - Product substitution issue [None]

NARRATIVE: CASE EVENT DATE: 2010
